FAERS Safety Report 23618572 (Version 3)
Quarter: 2024Q3

REPORT INFORMATION
  Report Type: Report from Study
  Country: IT (occurrence: IT)
  Receive Date: 20240311
  Receipt Date: 20240715
  Transmission Date: 20241017
  Serious: Yes (Other)
  Sender: TEVA
  Company Number: None

PATIENT
  Age: 15 Year
  Sex: Female
  Weight: 83 kg

DRUGS (3)
  1. VINCRISTINE [Suspect]
     Active Substance: VINCRISTINE
     Indication: Hodgkin^s disease
     Dosage: 2 MG/DAY ON 04, 11, 18/12/2023, VINCRISTINA TEVA ITALY
     Route: 042
     Dates: start: 20231204, end: 20231218
  2. DOXORUBICIN HYDROCHLORIDE [Suspect]
     Active Substance: DOXORUBICIN HYDROCHLORIDE
     Indication: Hodgkin^s disease
     Dosage: DOXORUBICINA ACCORD HEALTHCARE ITALIA
     Route: 042
     Dates: start: 20231204, end: 20231218
  3. ETOPOSIDE [Suspect]
     Active Substance: ETOPOSIDE
     Indication: Product used for unknown indication
     Dosage: 240 MG/DAY FROM DAY 04 TO DAY 08/12/2023,ETOPOSIDE SANDOZ
     Route: 065
     Dates: start: 20231204, end: 20231208

REACTIONS (3)
  - Leukopenia [Recovered/Resolved]
  - Neutropenia [Recovered/Resolved]
  - Alopecia [Not Recovered/Not Resolved]

NARRATIVE: CASE EVENT DATE: 20231227
